FAERS Safety Report 24881821 (Version 1)
Quarter: 2025Q1

REPORT INFORMATION
  Report Type: Spontaneous
  Country: CZ (occurrence: CZ)
  Receive Date: 20250124
  Receipt Date: 20250124
  Transmission Date: 20250408
  Serious: Yes (Other)
  Sender: GLENMARK
  Company Number: CZ-GLENMARK PHARMACEUTICALS-2025GMK097261

PATIENT

DRUGS (1)
  1. TERIFLUNOMIDE [Suspect]
     Active Substance: TERIFLUNOMIDE
     Indication: Multiple sclerosis
     Route: 048

REACTIONS (4)
  - Hemiparesis [Unknown]
  - Central nervous system lesion [Unknown]
  - Multiple sclerosis relapse [Unknown]
  - Drug ineffective [Unknown]

NARRATIVE: CASE EVENT DATE: 20220201
